FAERS Safety Report 11793040 (Version 2)
Quarter: 2016Q1

REPORT INFORMATION
  Report Type: Spontaneous
  Country: JP (occurrence: JP)
  Receive Date: 20151202
  Receipt Date: 20160107
  Transmission Date: 20160525
  Serious: Yes (Death, Other)
  Sender: FDA-Public Use
  Company Number: JP-MYLANLABS-2015M1042333

PATIENT

DRUGS (10)
  1. AMBISOME [Suspect]
     Active Substance: AMPHOTERICIN B
     Indication: CANDIDA INFECTION
     Route: 050
  2. CEFEPIME [Concomitant]
     Active Substance: CEFEPIME HYDROCHLORIDE
     Indication: INFECTION
     Route: 042
  3. HYDREA [Concomitant]
     Active Substance: HYDROXYUREA
     Indication: SPLENOMEGALY
     Dosage: 1000MG/DAY
     Route: 048
  4. REVLIMID [Concomitant]
     Active Substance: LENALIDOMIDE
     Indication: PRIMARY MYELOFIBROSIS
     Dosage: 10MG
     Route: 048
     Dates: start: 20131210
  5. VIDAZA [Concomitant]
     Active Substance: AZACITIDINE
     Indication: SPLENOMEGALY
     Dosage: 100MG/DAY
     Route: 041
  6. CICLOSPORIN [Suspect]
     Active Substance: CYCLOSPORINE
     Indication: PRIMARY MYELOFIBROSIS
     Dosage: UNK
     Route: 065
     Dates: start: 20131221
  7. ETOPOSIDE. [Suspect]
     Active Substance: ETOPOSIDE
     Indication: PRIMARY MYELOFIBROSIS
     Dosage: 200MG/DAY
     Route: 065
     Dates: start: 20131225
  8. MICAFUNGIN [Suspect]
     Active Substance: MICAFUNGIN
     Indication: INFECTION
     Route: 050
  9. SOL-MELCORT [Suspect]
     Active Substance: METHYLPREDNISOLONE SODIUM SUCCINATE
     Indication: HISTIOCYTOSIS HAEMATOPHAGIC
     Dosage: 500 MG/DAY FOR 4 DAYS STEROID PULSE THERAPY
     Route: 065
  10. PREDONINE [Suspect]
     Active Substance: PREDNISOLONE\PREDNISOLONE ACETATE\PREDNISOLONE SODIUM SUCCINATE
     Indication: PRIMARY MYELOFIBROSIS
     Dosage: 10MG
     Route: 065
     Dates: start: 20131210

REACTIONS (2)
  - Acute kidney injury [Fatal]
  - Trichosporon infection [Unknown]
